FAERS Safety Report 5611092-6 (Version None)
Quarter: 2008Q1

REPORT INFORMATION
  Report Type: 
  Country: None (occurrence: None)
  Receive Date: 20080201
  Receipt Date: 20080128
  Transmission Date: 20080703
  Serious: Yes (Other)
  Sender: FDA-Public Use
  Company Number: BR-BRISTOL-MYERS SQUIBB COMPANY-14057178

PATIENT
  Age: 82 Year
  Sex: Male

DRUGS (2)
  1. DEFINITY [Suspect]
  2. METFORMIN HCL [Suspect]
     Indication: DIABETES MELLITUS

REACTIONS (5)
  - ARRHYTHMIA [None]
  - ARTHRALGIA [None]
  - BACK PAIN [None]
  - CHEST DISCOMFORT [None]
  - EPIGASTRIC DISCOMFORT [None]
